FAERS Safety Report 7512556-0 (Version None)
Quarter: 2011Q2

REPORT INFORMATION
  Report Type: 
  Country: None (occurrence: None)
  Receive Date: 20110531
  Receipt Date: 20110523
  Transmission Date: 20111010
  Serious: Yes (Other)
  Sender: FDA-Public Use
  Company Number: US-ROCHE-778925

PATIENT
  Sex: Male

DRUGS (2)
  1. CYTOVENE [Suspect]
     Route: 042
  2. VALCYTE [Suspect]
     Dosage: FREQUENCY: DAILY.
     Route: 048

REACTIONS (3)
  - RESPIRATORY DISORDER [None]
  - TRANSPLANT FAILURE [None]
  - SPLENIC INJURY [None]
